FAERS Safety Report 9632764 (Version 4)
Quarter: 2013Q4

REPORT INFORMATION
  Report Type: Spontaneous
  Country: US (occurrence: US)
  Receive Date: 20131018
  Receipt Date: 20131206
  Transmission Date: 20140711
  Serious: Yes (Hospitalization)
  Sender: FDA-Public Use
  Company Number: US-PFIZER INC-2013297611

PATIENT
  Age: 65 Year
  Sex: Male

DRUGS (4)
  1. DILANTIN [Suspect]
     Dosage: UNK
  2. DILANTIN [Suspect]
     Dosage: 200 MG, 3X/DAY
     Dates: start: 201306
  3. LACOSAMIDE [Suspect]
     Indication: CONVULSION
     Dosage: 100 MG, 2X/DAY
     Dates: start: 20130912
  4. DIVALPROEX [Suspect]
     Indication: CONVULSION
     Dosage: 1000 MG, 3X/DAY
     Dates: start: 20130912

REACTIONS (6)
  - Convulsion [Unknown]
  - Fall [Unknown]
  - Gait disturbance [Unknown]
  - Fall [Unknown]
  - Condition aggravated [Unknown]
  - Balance disorder [Unknown]
